FAERS Safety Report 23076997 (Version 3)
Quarter: 2023Q4

REPORT INFORMATION
  Report Type: Report from Study
  Country: US (occurrence: US)
  Receive Date: 20231018
  Receipt Date: 20231219
  Transmission Date: 20240110
  Serious: Yes (Other)
  Sender: FDA-Public Use
  Company Number: US-ABBVIE-4716827

PATIENT
  Sex: Female

DRUGS (3)
  1. HUMIRA [Suspect]
     Active Substance: ADALIMUMAB
     Indication: Psoriasis
     Dosage: CITRATE FREE?FORM STRENGTH WAS 40 MG
     Route: 058
     Dates: start: 20171227, end: 2019
  2. LISINOPRIL [Concomitant]
     Active Substance: LISINOPRIL
     Indication: Product used for unknown indication
     Route: 065
  3. RESTASIS [Concomitant]
     Active Substance: CYCLOSPORINE
     Indication: Product used for unknown indication

REACTIONS (22)
  - Arterial occlusive disease [Recovered/Resolved]
  - Alanine aminotransferase increased [Unknown]
  - Depressed mood [Recovered/Resolved]
  - Multiple fractures [Unknown]
  - Fall [Recovered/Resolved]
  - Joint lock [Recovered/Resolved]
  - Rib fracture [Unknown]
  - Contusion [Recovered/Resolved]
  - Fall [Recovered/Resolved]
  - Upper limb fracture [Unknown]
  - Skin discolouration [Unknown]
  - Head injury [Unknown]
  - Loss of personal independence in daily activities [Recovered/Resolved]
  - Arthritis [Recovered/Resolved]
  - Skin haemorrhage [Unknown]
  - Eye swelling [Recovered/Resolved]
  - Gait inability [Recovered/Resolved]
  - Mobility decreased [Unknown]
  - Injection site pain [Recovered/Resolved]
  - Psoriasis [Recovered/Resolved]
  - Weight increased [Unknown]
  - Burning sensation [Unknown]

NARRATIVE: CASE EVENT DATE: 20210101
